FAERS Safety Report 18361484 (Version 1)
Quarter: 2020Q4

REPORT INFORMATION
  Report Type: Spontaneous
  Country: CN (occurrence: CN)
  Receive Date: 20201008
  Receipt Date: 20201008
  Transmission Date: 20210114
  Serious: Yes (Other)
  Sender: FDA-Public Use
  Company Number: CN-LUPIN PHARMACEUTICALS INC.-2020-00260

PATIENT
  Age: 59 Year
  Sex: Male

DRUGS (2)
  1. CELECOXIB. [Suspect]
     Active Substance: CELECOXIB
     Indication: INFLAMMATORY MYOFIBROBLASTIC TUMOUR
     Dosage: 0.2 GRAM, BID (EVERY 12-HOUR)
     Route: 048
     Dates: start: 201802, end: 201803
  2. CELECOXIB. [Suspect]
     Active Substance: CELECOXIB
     Indication: NEOPLASM PROGRESSION

REACTIONS (2)
  - Gastric ulcer [Recovering/Resolving]
  - Condition aggravated [Recovering/Resolving]

NARRATIVE: CASE EVENT DATE: 201803
